FAERS Safety Report 5718461-4 (Version None)
Quarter: 2008Q2

REPORT INFORMATION
  Report Type: 
  Country: None (occurrence: None)
  Receive Date: 20080425
  Receipt Date: 20080416
  Transmission Date: 20081010
  Serious: Yes (Hospitalization, Disabling)
  Sender: FDA-Public Use
  Company Number: FR-PFIZER INC-2008034308

PATIENT
  Sex: Female

DRUGS (2)
  1. ATORVASTATIN CALCIUM [Suspect]
     Indication: HYPERCHOLESTEROLAEMIA
     Route: 048
     Dates: start: 20000101, end: 20060101
  2. EZETIMIBE/SIMVASTATIN [Suspect]

REACTIONS (5)
  - ARTHRALGIA [None]
  - SUBCUTANEOUS NODULE [None]
  - TENDON DISORDER [None]
  - TENDON PAIN [None]
  - VERTIGO [None]
